FAERS Safety Report 4968399-5 (Version None)
Quarter: 2006Q2

REPORT INFORMATION
  Report Type: 
  Country: None (occurrence: None)
  Receive Date: 20060410
  Receipt Date: 20060331
  Transmission Date: 20061013
  Serious: Yes (Disabling)
  Sender: FDA-Public Use
  Company Number: CH-ABBOTT-06P-151-0329756-00

PATIENT
  Age: 59 Year
  Sex: Female

DRUGS (11)
  1. KLARICID FILM-COATED TABLETS [Suspect]
     Indication: BRONCHITIS ACUTE
     Route: 048
     Dates: start: 20060120, end: 20060125
  2. KLARICID FILM-COATED TABLETS [Suspect]
     Indication: SINUSITIS
  3. MEFLOQUINE [Suspect]
     Indication: MALARIA PROPHYLAXIS
     Route: 048
     Dates: start: 20060115, end: 20060118
  4. MEFLOQUINE [Suspect]
     Indication: PYREXIA
     Dates: start: 19960101
  5. MEFLOQUINE [Suspect]
     Dates: start: 20040101
  6. CLAVULIN [Concomitant]
     Indication: BRONCHITIS ACUTE
     Dosage: 500 MG/125 MG
     Route: 048
     Dates: start: 20060120, end: 20060120
  7. PEPERMINT [Concomitant]
     Indication: DRUG USE FOR UNKNOWN INDICATION
  8. YECUEINE [Concomitant]
     Indication: DRUG USE FOR UNKNOWN INDICATION
  9. THYORSIAN [Concomitant]
     Indication: DRUG USE FOR UNKNOWN INDICATION
  10. MELISEC [Concomitant]
     Indication: DRUG USE FOR UNKNOWN INDICATION
  11. SALVIA [Concomitant]
     Indication: DRUG USE FOR UNKNOWN INDICATION

REACTIONS (3)
  - HEPATIC CYST [None]
  - PARAESTHESIA [None]
  - PARESIS [None]
